FAERS Safety Report 10433273 (Version 5)
Quarter: 2014Q4

REPORT INFORMATION
  Report Type: Spontaneous
  Country: JP (occurrence: JP)
  Receive Date: 20140905
  Receipt Date: 20141117
  Transmission Date: 20150528
  Serious: Yes (Death, Disabling, Other)
  Sender: FDA-Public Use
  Company Number: JP-OTSUKA-JP-2014-17382

PATIENT

DRUGS (35)
  1. SERENACE [Concomitant]
     Active Substance: HALOPERIDOL
     Indication: PRODUCT USED FOR UNKNOWN INDICATION
     Dosage: 0.75 MG MILLIGRAM(S), DAILY DOSE
     Route: 048
     Dates: end: 20140826
  2. GLUCOSE [Concomitant]
     Active Substance: DEXTROSE
     Indication: PRODUCT USED FOR UNKNOWN INDICATION
     Dosage: 20 ML MILLILITRE(S), DAILY DOSE
     Route: 042
     Dates: start: 20140818, end: 20140822
  3. LASIX M [Concomitant]
     Active Substance: FUROSEMIDE
     Dosage: 20 MG MILLIGRAM(S), QD
     Route: 042
     Dates: start: 20140829, end: 20140829
  4. SAXIZON [Concomitant]
     Active Substance: HYDROCORTISONE SODIUM SUCCINATE
     Indication: PRODUCT USED FOR UNKNOWN INDICATION
     Dosage: 200 MG MILLIGRAM(S), QD
     Route: 041
     Dates: start: 20140821, end: 20140821
  5. KAYTWO N [Concomitant]
     Active Substance: UNSPECIFIED INGREDIENT
     Dosage: 10 MG MILLIGRAM(S), DAILY DOSE
     Route: 041
     Dates: start: 20140904, end: 20140904
  6. KAYTWO N [Concomitant]
     Active Substance: UNSPECIFIED INGREDIENT
     Dosage: 10 MG MILLIGRAM(S), DAILY DOSE
     Route: 041
     Dates: start: 20140906, end: 20140906
  7. SAMSCA [Suspect]
     Active Substance: TOLVAPTAN
     Indication: HYPOALBUMINAEMIA
  8. CALONAL [Concomitant]
     Active Substance: ACETAMINOPHEN
     Indication: PRODUCT USED FOR UNKNOWN INDICATION
     Dosage: 200 MG MILLIGRAM(S), PRN
     Route: 048
     Dates: start: 20140819, end: 20140826
  9. LASIX M [Concomitant]
     Active Substance: FUROSEMIDE
     Indication: PRODUCT USED FOR UNKNOWN INDICATION
     Dosage: 20 MG MILLIGRAM(S), DAILY DOSE
     Route: 048
     Dates: end: 20140827
  10. KANAMYCIN [Concomitant]
     Active Substance: KANAMYCIN\KANAMYCIN A SULFATE
     Indication: PRODUCT USED FOR UNKNOWN INDICATION
     Dosage: 2000 MG MILLIGRAM(S), DAILY DOSE
     Route: 048
     Dates: end: 20140827
  11. LASIX M [Concomitant]
     Active Substance: FUROSEMIDE
     Indication: PRODUCT USED FOR UNKNOWN INDICATION
     Dosage: 20 MG MILLIGRAM(S), QD
     Route: 042
     Dates: start: 20140818, end: 20140822
  12. GLUCOSE [Concomitant]
     Active Substance: DEXTROSE
     Indication: PRODUCT USED FOR UNKNOWN INDICATION
     Dosage: 20 ML MILLILITRE(S), QD
     Route: 042
     Dates: start: 20140822, end: 20140901
  13. KAYTWO N [Concomitant]
     Active Substance: UNSPECIFIED INGREDIENT
     Dosage: 10 MG MILLIGRAM(S), DAILY DOSE
     Route: 041
     Dates: start: 20140831, end: 20140831
  14. KAYTWO N [Concomitant]
     Active Substance: UNSPECIFIED INGREDIENT
     Dosage: 10 MG MILLIGRAM(S), DAILY DOSE
     Route: 041
     Dates: start: 20140902, end: 20140902
  15. SAMSCA [Suspect]
     Active Substance: TOLVAPTAN
     Indication: FLUID RETENTION
  16. CONCENTRATED RED CELLS [Concomitant]
     Active Substance: HUMAN RED BLOOD CELL
     Dosage: 2 IU, DAILY DOSE
     Route: 041
     Dates: start: 20140823, end: 20140823
  17. SEISHOKU [Concomitant]
     Active Substance: SODIUM CHLORIDE
     Indication: PRODUCT USED FOR UNKNOWN INDICATION
     Dosage: 100 ML MILLILITRE(S), BID
     Route: 041
     Dates: start: 20140821, end: 20140905
  18. KAYTWO N [Concomitant]
     Active Substance: UNSPECIFIED INGREDIENT
     Dosage: 10 MG MILLIGRAM(S), DAILY DOSE
     Route: 041
     Dates: start: 20140826, end: 20140826
  19. SAMSCA [Suspect]
     Active Substance: TOLVAPTAN
     Indication: HEPATIC FAILURE
     Dosage: 7.5 MG MILLIGRAM(S), DAILY DOSE
     Route: 048
     Dates: start: 20140822, end: 20140827
  20. ALBUMIN [Concomitant]
     Active Substance: ALBUMIN (HUMAN)
     Indication: PRODUCT USED FOR UNKNOWN INDICATION
     Dosage: 50 ML MILLILITRE(S), QD
     Route: 042
     Dates: start: 20140818, end: 20140818
  21. ALBUMIN [Concomitant]
     Active Substance: ALBUMIN (HUMAN)
     Dosage: 50 ML MILLILITRE(S), QD
     Route: 042
     Dates: start: 20140904, end: 20140904
  22. DEPAS [Concomitant]
     Active Substance: ETIZOLAM
     Indication: PRODUCT USED FOR UNKNOWN INDICATION
     Dosage: 1 MG MILLIGRAM(S), DAILY DOSE
     Route: 048
     Dates: end: 20140826
  23. ALBUMIN [Concomitant]
     Active Substance: ALBUMIN (HUMAN)
     Dosage: 50 ML MILLILITRE(S), QD
     Route: 042
     Dates: start: 20140901, end: 20140901
  24. MINOMYCIN [Concomitant]
     Active Substance: MINOCYCLINE HYDROCHLORIDE
     Dosage: 100 MG MILLIGRAM(S), BID
     Route: 041
     Dates: start: 20140822, end: 20140826
  25. CONCENTRATED RED CELLS [Concomitant]
     Active Substance: HUMAN RED BLOOD CELL
     Dosage: 2 IU, DAILY DOSE
     Route: 041
     Dates: start: 20140819, end: 20140819
  26. ALBUMIN [Concomitant]
     Active Substance: ALBUMIN (HUMAN)
     Dosage: 50 ML MILLILITRE(S), QD
     Route: 042
     Dates: start: 20140827, end: 20140829
  27. KAYTWO N [Concomitant]
     Active Substance: UNSPECIFIED INGREDIENT
     Indication: PRODUCT USED FOR UNKNOWN INDICATION
     Dosage: 10 MG MILLIGRAM(S), DAILY DOSE
     Route: 041
     Dates: start: 20140822, end: 20140822
  28. SAMSCA [Suspect]
     Active Substance: TOLVAPTAN
     Indication: ASCITES
  29. SOLDACTONE [Concomitant]
     Active Substance: CANRENOATE POTASSIUM
     Indication: PRODUCT USED FOR UNKNOWN INDICATION
     Dosage: 100 MG MILLIGRAM(S), QD
     Route: 042
     Dates: start: 20140818, end: 20140822
  30. CONCENTRATED RED CELLS [Concomitant]
     Active Substance: HUMAN RED BLOOD CELL
     Indication: PRODUCT USED FOR UNKNOWN INDICATION
     Dosage: 4 IU, DAILY DOSE
     Route: 041
     Dates: start: 20140818, end: 20140818
  31. MINOMYCIN [Concomitant]
     Active Substance: MINOCYCLINE HYDROCHLORIDE
     Indication: PRODUCT USED FOR UNKNOWN INDICATION
     Dosage: 100 MG MILLIGRAM(S), QD
     Route: 041
     Dates: start: 20140821, end: 20140821
  32. FRESH FROZEN PLASMA [Concomitant]
     Active Substance: HUMAN PLASMA
     Indication: PRODUCT USED FOR UNKNOWN INDICATION
     Dosage: 4 IU, DAILY DOSE
     Route: 041
     Dates: start: 20140822, end: 20140823
  33. KAYTWO N [Concomitant]
     Active Substance: UNSPECIFIED INGREDIENT
     Dosage: 10 MG MILLIGRAM(S), DAILY DOSE
     Route: 041
     Dates: start: 20140824, end: 20140824
  34. KAYTWO N [Concomitant]
     Active Substance: UNSPECIFIED INGREDIENT
     Dosage: 10 MG MILLIGRAM(S), DAILY DOSE
     Route: 041
     Dates: start: 20140908, end: 20140911
  35. ANHIBA [Concomitant]
     Active Substance: ACETAMINOPHEN
     Indication: PRODUCT USED FOR UNKNOWN INDICATION
     Dosage: UNK
     Route: 054
     Dates: start: 20140827

REACTIONS (9)
  - Aspiration [Unknown]
  - Shock haemorrhagic [Fatal]
  - Fall [None]
  - Acute kidney injury [Not Recovered/Not Resolved]
  - Hepatic encephalopathy [Unknown]
  - Pneumonia [Unknown]
  - Oesophageal varices haemorrhage [Fatal]
  - Dehydration [Not Recovered/Not Resolved]
  - Muscle haemorrhage [None]

NARRATIVE: CASE EVENT DATE: 20140827
